FAERS Safety Report 16014025 (Version 1)
Quarter: 2019Q1

REPORT INFORMATION
  Report Type: Spontaneous
  Country: KR (occurrence: KR)
  Receive Date: 20190227
  Receipt Date: 20190227
  Transmission Date: 20190418
  Serious: Yes (Other)
  Sender: FDA-Public Use
  Company Number: KR-BAYER-2019-021326

PATIENT
  Age: 42 Year
  Sex: Female

DRUGS (2)
  1. MIRENA [Suspect]
     Active Substance: LEVONORGESTREL
  2. MIRENA [Suspect]
     Active Substance: LEVONORGESTREL
     Dosage: 20 MCG/24HR, CONT
     Route: 015
     Dates: start: 201405

REACTIONS (7)
  - Abdominal pain [None]
  - Uterine mass [None]
  - Dysuria [None]
  - Uterine enlargement [None]
  - Hypomenorrhoea [None]
  - Dysuria [None]
  - Urinary retention [None]

NARRATIVE: CASE EVENT DATE: 201606
